FAERS Safety Report 9205895 (Version 1)
Quarter: 2013Q2

REPORT INFORMATION
  Report Type: Spontaneous
  Country: DE (occurrence: DE)
  Receive Date: 20130403
  Receipt Date: 20130412
  Transmission Date: 20140414
  Serious: Yes (Other)
  Sender: FDA-Public Use
  Company Number: DE-009507513-1303DEU013250

PATIENT
  Age: 68 Year
  Sex: Female

DRUGS (1)
  1. ECURAL FETTCREME, 1 MG/G CREME [Suspect]
     Indication: EXOSTOSIS OF JAW
     Dosage: 1 MG/G, UNK
     Route: 061
     Dates: start: 20130321, end: 20130324

REACTIONS (1)
  - Leukoderma [Not Recovered/Not Resolved]
